FAERS Safety Report 4595958-4 (Version None)
Quarter: 2005Q1

REPORT INFORMATION
  Report Type: 
  Country: None (occurrence: None)
  Receive Date: 20050224
  Receipt Date: 20050224
  Transmission Date: 20050727
  Serious: Yes (Other)
  Sender: FDA-Public Use
  Company Number: None

PATIENT
  Age: 56 Day
  Sex: Male

DRUGS (1)
  1. ZANTAC [Suspect]
     Indication: GASTROOESOPHAGEAL REFLUX DISEASE
     Dosage: 1/4 ML  MISPRINT 1/4 T ORAL
     Route: 048
     Dates: start: 20011001, end: 20011120

REACTIONS (4)
  - AUTISM SPECTRUM DISORDER [None]
  - OVERDOSE [None]
  - SENSORY INTEGRATIVE DYSFUNCTION [None]
  - SPEECH DISORDER DEVELOPMENTAL [None]
